FAERS Safety Report 5231449-5 (Version None)
Quarter: 2007Q1

REPORT INFORMATION
  Report Type: 
  Country: None (occurrence: None)
  Receive Date: 20070206
  Receipt Date: 20070129
  Transmission Date: 20070707
  Serious: Yes (Other)
  Sender: FDA-Public Use
  Company Number: GB-SHR-GB-2007-003093

PATIENT
  Age: 80 Year
  Sex: Female
  Weight: 75 kg

DRUGS (1)
  1. MAGNEVIST [Suspect]
     Dosage: 20 ML, 2 DOSES
     Route: 042
     Dates: start: 20070109, end: 20070109

REACTIONS (1)
  - DRUG INEFFECTIVE [None]
